FAERS Safety Report 14979146 (Version 9)
Quarter: 2020Q3

REPORT INFORMATION
  Report Type: Report from Study
  Country: DE (occurrence: DE)
  Receive Date: 20180606
  Receipt Date: 20180829
  Transmission Date: 20201104
  Serious: Yes (Hospitalization, Other)
  Sender: FDA-Public Use
  Company Number: DE-CELGENEUS-DEU-20180600051

PATIENT
  Age: 64 Year
  Sex: Male
  Weight: 88.4 kg

DRUGS (95)
  1. MELPHALAN. [Suspect]
     Active Substance: MELPHALAN
     Indication: PLASMA CELL MYELOMA
     Route: 065
     Dates: start: 20120512, end: 20120513
  2. PANTOZOL [Concomitant]
     Active Substance: PANTOPRAZOLE SODIUM
     Indication: GASTROOESOPHAGEAL REFLUX PROPHYLAXIS
     Dosage: 4 MILLIGRAM
     Route: 048
     Dates: start: 20170410, end: 20180525
  3. DULCOLAX NOS [Concomitant]
     Active Substance: BISACODYL OR DOCUSATE SODIUM
     Indication: CONSTIPATION PROPHYLAXIS
     Dosage: 1 DOSAGE FORMS
     Route: 054
     Dates: start: 20180624, end: 20180625
  4. PANTOPRAZOL [Concomitant]
     Active Substance: PANTOPRAZOLE SODIUM
     Dosage: 40 MG
     Route: 048
     Dates: start: 20180622, end: 20180709
  5. PIRITRAMIDE [Concomitant]
     Active Substance: PIRITRAMIDE
     Indication: COLECTOMY
     Route: 041
     Dates: start: 20180615, end: 20180615
  6. PALLADON [Concomitant]
     Active Substance: HYDROMORPHONE
     Indication: LIVER ABSCESS
     Dosage: 16 MILLIGRAM
     Route: 048
     Dates: start: 20180529, end: 20180530
  7. IBUPROFEN. [Concomitant]
     Active Substance: IBUPROFEN
     Indication: COLECTOMY
     Dosage: 1600 MILLIGRAM
     Route: 048
     Dates: start: 20180615, end: 20180615
  8. ATRACURIUM [Concomitant]
     Active Substance: ATRACURIUM
     Indication: ANAESTHESIA
     Dosage: 65 MILLIGRAM
     Route: 041
     Dates: start: 20180615, end: 20180615
  9. EPHEDRIN [Concomitant]
     Active Substance: EPHEDRINE HYDROCHLORIDE
     Indication: ANAESTHESIA
     Dosage: 25 MILLIGRAM
     Route: 041
     Dates: start: 20180615, end: 20180615
  10. GLYCEROL [Concomitant]
     Active Substance: GLYCERIN
     Indication: CONSTIPATION PROPHYLAXIS
     Dosage: 1 MILLIGRAM
     Route: 054
     Dates: start: 20180617, end: 20180617
  11. LOPERAMIDE [Concomitant]
     Active Substance: LOPERAMIDE
     Indication: DIARRHOEA
     Route: 048
     Dates: start: 201807
  12. PHYTOMENADION [Concomitant]
     Indication: COLECTOMY
     Route: 041
     Dates: start: 20180616, end: 20180616
  13. DEXAMETHASONE. [Suspect]
     Active Substance: DEXAMETHASONE
     Indication: PLASMA CELL MYELOMA
     Dosage: 40 MILLIGRAM
     Route: 048
     Dates: start: 20170209, end: 20170302
  14. REVLIMID [Suspect]
     Active Substance: LENALIDOMIDE
     Dosage: 15 MG
     Route: 048
     Dates: start: 20110923, end: 20111208
  15. COTRIM FORTE [Concomitant]
     Active Substance: SULFAMETHOXAZOLE\TRIMETHOPRIM
     Indication: INFECTION PROPHYLAXIS
     Dosage: 960 MILLIGRAM
     Route: 048
     Dates: start: 20171019, end: 20180503
  16. DULCOLAX NOS [Concomitant]
     Active Substance: BISACODYL OR DOCUSATE SODIUM
     Indication: CONSTIPATION PROPHYLAXIS
  17. BIFITERAL [Concomitant]
     Active Substance: LACTULOSE
     Dosage: 30 MILLILITER
     Route: 048
     Dates: start: 20180616, end: 20180617
  18. XYLOCAIN [LIDOCAINE] [Concomitant]
     Active Substance: LIDOCAINE
     Indication: LOCAL ANAESTHESIA
     Route: 058
     Dates: start: 20180531, end: 20180531
  19. PANTOPRAZOL [Concomitant]
     Active Substance: PANTOPRAZOLE SODIUM
     Dosage: 40 MG
     Route: 048
     Dates: start: 20180619, end: 20180619
  20. DIMENHYDRINAT [Concomitant]
     Active Substance: DIMENHYDRINATE
     Indication: COLECTOMY
     Route: 041
     Dates: start: 20180615, end: 20180615
  21. PALLADON [Concomitant]
     Active Substance: HYDROMORPHONE
     Indication: ARTHRALGIA
     Dosage: 16 MILLIGRAM
     Route: 048
     Dates: start: 20171116, end: 20180525
  22. JONOSTERIL (CALCIUM ACETATE\MAGNESIUM ACETATE\POTASSIUM ACETATE\SODIUM ACETATE\SODIUM CHLORIDE) [Concomitant]
     Active Substance: CALCIUM ACETATE\MAGNESIUM ACETATE\POTASSIUM ACETATE\SODIUM ACETATE\SODIUM CHLORI
     Indication: RENAL FAILURE
     Dosage: 500 MILLILITER
     Route: 041
     Dates: start: 20180503, end: 20180503
  23. MIDAZOLAM HYDROCHLORIDE. [Concomitant]
     Active Substance: MIDAZOLAM HYDROCHLORIDE
     Indication: COLECTOMY
     Dosage: 7.5 MILLIGRAM
     Route: 048
     Dates: start: 20180615, end: 20180615
  24. DISTIGMINE BROMIDE [Concomitant]
     Active Substance: DISTIGMINE BROMIDE
     Dosage: 1 MILLIGRAM
     Route: 041
     Dates: start: 20180622, end: 20180623
  25. CC?4047 [Suspect]
     Active Substance: POMALIDOMIDE
     Dosage: 4 MILLIGRAM
     Route: 048
     Dates: start: 20180503, end: 20180509
  26. DEXAMETHASONE. [Suspect]
     Active Substance: DEXAMETHASONE
     Dosage: 4 MILLIGRAM
     Route: 048
     Dates: start: 20180606, end: 2018
  27. REVLIMID [Suspect]
     Active Substance: LENALIDOMIDE
     Indication: PLASMA CELL MYELOMA
     Dosage: 25 MG
     Route: 048
     Dates: start: 20110606, end: 20110628
  28. REVLIMID [Suspect]
     Active Substance: LENALIDOMIDE
     Dosage: 15 MG
     Route: 048
     Dates: start: 20160216, end: 20160621
  29. ZOMETA [Concomitant]
     Active Substance: ZOLEDRONIC ACID
     Indication: PROPHYLAXIS
     Dosage: 4 MILLIGRAM
     Route: 041
     Dates: start: 20171214, end: 20180525
  30. NOVALGIN (CAFFEINE\PARACETAMOL\PROPYPHENAZONE) [Concomitant]
     Active Substance: ACETAMINOPHEN\CAFFEINE\PROPYPHENAZONE
     Indication: COLECTOMY
     Dosage: 4 GRAM
     Route: 048
     Dates: start: 20180615
  31. NOVALGIN (CAFFEINE\PARACETAMOL\PROPYPHENAZONE) [Concomitant]
     Active Substance: ACETAMINOPHEN\CAFFEINE\PROPYPHENAZONE
     Indication: COLORECTAL CANCER METASTATIC
     Dosage: 4 GRAM
     Route: 041
     Dates: start: 20180620, end: 20180622
  32. SUFENTANIL [Concomitant]
     Active Substance: SUFENTANIL
     Dosage: .15 MILLIGRAM
     Route: 041
     Dates: start: 20180615, end: 20180616
  33. METOCLOPRAMIDE. [Concomitant]
     Active Substance: METOCLOPRAMIDE
     Dosage: 10 MILLIGRAM
     Route: 048
     Dates: start: 20180710
  34. PREGABALIN. [Concomitant]
     Active Substance: PREGABALIN
     Indication: POLYNEUROPATHY
     Dosage: 525 MILLIGRAM
     Route: 048
     Dates: start: 201807
  35. MOVICOL [Concomitant]
     Active Substance: POLYETHYLENE GLYCOL 3350\POTASSIUM CHLORIDE\SODIUM BICARBONATE\SODIUM CHLORIDE
     Indication: CONSTIPATION
     Route: 048
     Dates: start: 20171008, end: 20180525
  36. PANTOPRAZOL [Concomitant]
     Active Substance: PANTOPRAZOLE SODIUM
     Indication: PROPHYLAXIS
     Dosage: 40 MG
     Route: 048
     Dates: start: 20180606
  37. PALLADON [Concomitant]
     Active Substance: HYDROMORPHONE
     Indication: COLORECTAL CANCER METASTATIC
     Dosage: 2.6 MILLIGRAM
     Route: 048
     Dates: start: 20180608
  38. JONOSTERIL (CALCIUM ACETATE\MAGNESIUM ACETATE\POTASSIUM ACETATE\SODIUM ACETATE\SODIUM CHLORIDE) [Concomitant]
     Active Substance: CALCIUM ACETATE\MAGNESIUM ACETATE\POTASSIUM ACETATE\SODIUM ACETATE\SODIUM CHLORI
     Indication: PROPHYLAXIS AGAINST DEHYDRATION
     Dosage: 1000 MILLILITER
     Route: 041
     Dates: start: 20180620, end: 20180620
  39. NOREPINEPHRINE. [Concomitant]
     Active Substance: NOREPINEPHRINE
     Indication: COLECTOMY
     Dosage: 4 MILLIGRAM
     Route: 041
     Dates: start: 20180615, end: 20180615
  40. METOCLOPRAMIDE. [Concomitant]
     Active Substance: METOCLOPRAMIDE
     Dosage: 30 MILLIGRAM
     Route: 041
     Dates: start: 20180621, end: 20180621
  41. POTASSIUM CHLORIDE. [Concomitant]
     Active Substance: POTASSIUM CHLORIDE
     Dosage: 40 MILLILITER
     Route: 041
     Dates: start: 20180626, end: 20180626
  42. FORTIMEL [Concomitant]
     Active Substance: DIETARY SUPPLEMENT
     Indication: NUTRITIONAL SUPPLEMENTATION
     Route: 048
     Dates: start: 201807, end: 201807
  43. DEXAMETHASONE. [Suspect]
     Active Substance: DEXAMETHASONE
     Dosage: 20 MILLIGRAM
     Route: 065
     Dates: start: 20150501, end: 20150815
  44. REVLIMID [Suspect]
     Active Substance: LENALIDOMIDE
     Dosage: 10 MG
     Route: 048
     Dates: start: 20110726, end: 20110914
  45. PANTOZOL [Concomitant]
     Active Substance: PANTOPRAZOLE SODIUM
     Dosage: 40 MILLIGRAM
     Route: 048
     Dates: start: 20180606
  46. NOVALGIN (CAFFEINE\PARACETAMOL\PROPYPHENAZONE) [Concomitant]
     Active Substance: ACETAMINOPHEN\CAFFEINE\PROPYPHENAZONE
     Indication: ARTHROPATHY
     Route: 048
     Dates: start: 20180209, end: 20180525
  47. NOVALGIN (CAFFEINE\PARACETAMOL\PROPYPHENAZONE) [Concomitant]
     Active Substance: ACETAMINOPHEN\CAFFEINE\PROPYPHENAZONE
     Dosage: 4 GRAM
     Route: 048
     Dates: start: 20180622, end: 201807
  48. PANTOPRAZOL [Concomitant]
     Active Substance: PANTOPRAZOLE SODIUM
     Dosage: 40 MG
     Route: 041
     Dates: start: 20180615, end: 20180618
  49. PALLADON [Concomitant]
     Active Substance: HYDROMORPHONE
     Indication: BACK PAIN
     Dosage: 12 MILLIGRAM
     Route: 058
     Dates: start: 20180710
  50. ROPIVACAINE. [Concomitant]
     Active Substance: ROPIVACAINE HYDROCHLORIDE
     Indication: COLECTOMY
     Dosage: 400 MILLIGRAM
     Route: 048
     Dates: start: 20180615, end: 20180616
  51. MEDI4736 (DURVALUMAB) [Suspect]
     Active Substance: DURVALUMAB
     Indication: PLASMA CELL MYELOMA
     Dosage: 1500 MILLIGRAM
     Route: 041
     Dates: start: 20161215, end: 20161215
  52. DEXAMETHASONE. [Suspect]
     Active Substance: DEXAMETHASONE
     Dosage: 40 MILLIGRAM
     Route: 048
     Dates: start: 20180503, end: 20180503
  53. DEXAMETHASONE. [Suspect]
     Active Substance: DEXAMETHASONE
     Dosage: 20 MILLIGRAM
     Route: 065
     Dates: start: 20110606, end: 20111209
  54. REVLIMID [Suspect]
     Active Substance: LENALIDOMIDE
     Dosage: 15 MG
     Route: 048
     Dates: start: 20150501, end: 20150818
  55. DIMETINDEN [Concomitant]
     Active Substance: DIMETHINDENE
     Indication: PREMEDICATION
     Dosage: 4 MILLIGRAM
     Route: 041
     Dates: start: 20161215, end: 20180525
  56. ACICLOVIR [Concomitant]
     Active Substance: ACYCLOVIR
     Indication: INFECTION PROPHYLAXIS
     Dosage: 400 MILLIGRAM
     Route: 048
     Dates: start: 20171008, end: 20180503
  57. TORASEMID [Concomitant]
     Active Substance: TORSEMIDE
     Indication: OEDEMA PERIPHERAL
     Dosage: 30 MILLIGRAM
     Route: 048
     Dates: start: 20180208, end: 20180405
  58. BIFITERAL [Concomitant]
     Active Substance: LACTULOSE
     Indication: CONSTIPATION PROPHYLAXIS
     Dosage: 30 MILLILITER
     Route: 048
     Dates: start: 20180209, end: 20180525
  59. PANTOPRAZOL [Concomitant]
     Active Substance: PANTOPRAZOLE SODIUM
     Dosage: 40 MG
     Route: 041
     Dates: start: 20180620, end: 20180622
  60. JONOSTERIL (CALCIUM ACETATE\MAGNESIUM ACETATE\POTASSIUM ACETATE\SODIUM ACETATE\SODIUM CHLORIDE) [Concomitant]
     Active Substance: CALCIUM ACETATE\MAGNESIUM ACETATE\POTASSIUM ACETATE\SODIUM ACETATE\SODIUM CHLORI
     Dosage: 1000 MILLILITER
     Route: 041
     Dates: start: 20180626, end: 20180626
  61. SUFENTANIL [Concomitant]
     Active Substance: SUFENTANIL
     Indication: ANAESTHESIA
     Dosage: 50 MILLIGRAM
     Route: 041
     Dates: start: 20180615, end: 20180615
  62. DISTIGMINE BROMIDE [Concomitant]
     Active Substance: DISTIGMINE BROMIDE
     Dosage: 1.5 MILLIGRAM
     Route: 041
     Dates: start: 20180621, end: 20180621
  63. POTASSIUM CHLORIDE. [Concomitant]
     Active Substance: POTASSIUM CHLORIDE
     Indication: PROPHYLAXIS AGAINST DEHYDRATION
     Dosage: 30 MILLILITER
     Route: 041
     Dates: start: 20180620, end: 20180620
  64. LAXANS [Concomitant]
     Indication: CONSTIPATION PROPHYLAXIS
     Dosage: 20 DROPS
     Route: 048
     Dates: start: 20180710
  65. FRESUBIN ENERGY [Concomitant]
     Indication: NUTRITIONAL SUPPLEMENTATION
     Route: 048
     Dates: start: 201807
  66. MEDI4736 (DURVALUMAB) [Suspect]
     Active Substance: DURVALUMAB
     Dosage: 1500 MILLIGRAM
     Route: 041
     Dates: start: 20180503, end: 20180503
  67. DEXAMETHASONE. [Suspect]
     Active Substance: DEXAMETHASONE
     Dosage: 20 MILLIGRAM
     Route: 065
     Dates: start: 20160216, end: 20160622
  68. CALCILAC [Concomitant]
     Active Substance: CALCIUM CARBONATE
     Indication: OSTEOPOROSIS PROPHYLAXIS
     Dosage: 1 TABLET
     Route: 048
     Dates: start: 2015, end: 20180525
  69. ASPIRIN. [Concomitant]
     Active Substance: ASPIRIN
     Indication: THROMBOSIS PROPHYLAXIS
     Dosage: 100 MILLIGRAM
     Route: 048
     Dates: start: 20171019, end: 20180525
  70. FERROSANOL [Concomitant]
     Active Substance: FERROUS GLUCONATE
     Indication: ANAEMIA
     Dosage: 100 MILLIGRAM
     Route: 048
     Dates: start: 20171019, end: 20180525
  71. ATACAND [Concomitant]
     Active Substance: CANDESARTAN CILEXETIL
     Indication: HYPERTENSION
     Dosage: 8 MILLIGRAM
     Route: 048
     Dates: start: 20171214, end: 20180525
  72. BIFITERAL [Concomitant]
     Active Substance: LACTULOSE
     Route: 048
     Dates: start: 201807
  73. MACROGOL [Concomitant]
     Active Substance: POLYETHYLENE GLYCOLS
     Indication: CONSTIPATION PROPHYLAXIS
     Dosage: 1 BAG
     Route: 048
     Dates: start: 20180603, end: 20180603
  74. PROPOFOL. [Concomitant]
     Active Substance: PROPOFOL
     Indication: SURGERY
     Dosage: 130 MILLIGRAM
     Route: 041
     Dates: start: 20180605, end: 20180605
  75. PROPOFOL. [Concomitant]
     Active Substance: PROPOFOL
     Indication: ANAESTHESIA
     Dosage: 150 MILLIGRAM
     Route: 041
     Dates: start: 20180615, end: 20180615
  76. RINGER?LACTAT [Concomitant]
     Indication: COLECTOMY
     Dosage: 1000 MILLIGRAM
     Route: 041
     Dates: start: 20180615, end: 20180615
  77. BUPIVACAIN [Concomitant]
     Active Substance: BUPIVACAINE
     Dosage: 5 MILLIGRAM
     Route: 062
     Dates: start: 20180615, end: 20180615
  78. BUPIVACAIN [Concomitant]
     Active Substance: BUPIVACAINE
     Dosage: 8 MILLILITER
     Route: 041
     Dates: start: 20180615, end: 20180615
  79. DISTIGMINE BROMIDE [Concomitant]
     Active Substance: DISTIGMINE BROMIDE
     Indication: PROPHYLAXIS
     Dosage: .5 MILLIGRAM
     Route: 041
     Dates: start: 20180618, end: 20180618
  80. METOCLOPRAMIDE. [Concomitant]
     Active Substance: METOCLOPRAMIDE
     Indication: PROPHYLAXIS OF NAUSEA AND VOMITING
     Dosage: 10 MILLIGRAM
     Route: 041
     Dates: start: 20180618, end: 20180620
  81. METOCLOPRAMIDE. [Concomitant]
     Active Substance: METOCLOPRAMIDE
     Dosage: 10 MILLIGRAM
     Route: 041
     Dates: start: 20180618, end: 20180620
  82. METOCLOPRAMIDE. [Concomitant]
     Active Substance: METOCLOPRAMIDE
     Dosage: 10 MILLIGRAM
     Route: 048
     Dates: start: 20180620, end: 20180620
  83. CC?4047 [Suspect]
     Active Substance: POMALIDOMIDE
     Indication: PLASMA CELL MYELOMA
     Dosage: 4 MILLIGRAM
     Route: 048
     Dates: start: 20170209, end: 20170301
  84. BONDIOL [Concomitant]
     Active Substance: ALFACALCIDOL
     Indication: OSTEOPOROSIS PROPHYLAXIS
     Dosage: 1 MICROGRAM
     Route: 048
     Dates: start: 20180309, end: 20180405
  85. BONDIOL [Concomitant]
     Active Substance: ALFACALCIDOL
     Dosage: 3 MICROGRAM
     Route: 048
     Dates: start: 20180406, end: 20180525
  86. LAKTULOSE [Concomitant]
     Indication: CONSTIPATION PROPHYLAXIS
     Route: 048
     Dates: start: 20180615
  87. PALLADON [Concomitant]
     Active Substance: HYDROMORPHONE
     Indication: ADENOCARCINOMA
     Dosage: 16 MILLIGRAM
     Route: 048
     Dates: start: 20180531, end: 20180531
  88. PALLADON [Concomitant]
     Active Substance: HYDROMORPHONE
     Route: 048
     Dates: start: 201807
  89. IBUPROFEN. [Concomitant]
     Active Substance: IBUPROFEN
     Indication: BACK PAIN
     Dosage: 1200 MILLIGRAM
     Route: 048
     Dates: start: 201807
  90. CEFUROXIME. [Concomitant]
     Active Substance: CEFUROXIME
     Indication: COLECTOMY
     Dosage: 1.5 GRAM
     Route: 041
     Dates: start: 20180615, end: 20180615
  91. METRONIDAZOLE. [Concomitant]
     Active Substance: METRONIDAZOLE
     Indication: COLECTOMY
     Dosage: 500 MILLIGRAM
     Route: 041
     Dates: start: 20180615, end: 20180615
  92. BUPIVACAIN [Concomitant]
     Active Substance: BUPIVACAINE
     Indication: ANAESTHESIA
     Dosage: 3 MILLILITER
     Route: 048
     Dates: start: 20180615, end: 20180615
  93. PRILOCAINE [Concomitant]
     Active Substance: PRILOCAINE
     Indication: ANAESTHESIA
     Dosage: 5 MILLIGRAM
     Route: 061
     Dates: start: 20180615, end: 20180615
  94. DISTIGMINE BROMIDE [Concomitant]
     Active Substance: DISTIGMINE BROMIDE
     Dosage: .5 MILLIGRAM
     Route: 041
     Dates: start: 20180620, end: 20180620
  95. LORAZEPAM. [Concomitant]
     Active Substance: LORAZEPAM
     Indication: SLEEP DISORDER
     Route: 048
     Dates: start: 20180710

REACTIONS (1)
  - Colorectal cancer metastatic [Not Recovered/Not Resolved]

NARRATIVE: CASE EVENT DATE: 20180428
